FAERS Safety Report 5736102-7 (Version None)
Quarter: 2008Q2

REPORT INFORMATION
  Report Type: 
  Country: None (occurrence: None)
  Receive Date: 20080509
  Receipt Date: 20080509
  Transmission Date: 20081010
  Serious: Yes (Hospitalization)
  Sender: FDA-Public Use
  Company Number: 2008AL002796

PATIENT
  Sex: Female

DRUGS (3)
  1. DIGOXIN [Suspect]
     Dosage: PO
     Route: 048
  2. ASPIRIN [Concomitant]
  3. ACETAMINOPHEN [Concomitant]

REACTIONS (4)
  - BLOOD GLUCOSE INCREASED [None]
  - BLOOD PRESSURE FLUCTUATION [None]
  - CHEST PAIN [None]
  - HEART RATE INCREASED [None]
